FAERS Safety Report 9395641 (Version 1)
Quarter: 2013Q3

REPORT INFORMATION
  Report Type: Spontaneous
  Country: GB (occurrence: GB)
  Receive Date: 20130711
  Receipt Date: 20130711
  Transmission Date: 20140515
  Serious: Yes (Life-Threatening, Hospitalization, Other)
  Sender: FDA-Public Use
  Company Number: GB-ELI_LILLY_AND_COMPANY-GB201307001354

PATIENT
  Age: 78 Year
  Sex: Female
  Weight: 56 kg

DRUGS (23)
  1. DULOXETINE HYDROCHLORIDE [Suspect]
     Indication: PAIN
     Dosage: 30 MG, UNKNOWN
     Route: 048
     Dates: start: 20130618, end: 20130621
  2. AMLODIPINE [Concomitant]
     Dosage: UNK, UNKNOWN
     Route: 065
  3. BISOPROLOL [Concomitant]
     Dosage: UNK, UNKNOWN
     Route: 065
  4. CHLORHEXIDINE [Concomitant]
     Dosage: UNK, UNKNOWN
     Route: 065
  5. CODEINE PHOSPHATE [Concomitant]
     Dosage: UNK, UNKNOWN
     Route: 065
  6. DIAZEPAM [Concomitant]
     Dosage: UNK, UNKNOWN
     Route: 065
  7. ENOXAPARIN [Concomitant]
     Dosage: UNK, UNKNOWN
     Route: 065
  8. FOLIC ACID [Concomitant]
     Dosage: UNK, UNKNOWN
     Route: 065
  9. FRUSEMIDE [Concomitant]
     Dosage: UNK, UNKNOWN
     Route: 065
  10. HYDRALAZINE [Concomitant]
     Dosage: UNK, UNKNOWN
     Route: 065
  11. LANSOPRAZOL [Concomitant]
     Dosage: UNK, UNKNOWN
     Route: 065
  12. LEVOTHYROXINE [Concomitant]
     Dosage: UNK, UNKNOWN
     Route: 065
  13. MICONAZOL [Concomitant]
     Dosage: UNK, UNKNOWN
     Route: 065
  14. MIRTAZAPINE [Concomitant]
     Dosage: UNK, UNKNOWN
     Route: 065
  15. MORPHINE [Concomitant]
     Dosage: UNK, UNKNOWN
     Route: 048
  16. NYSTATIN [Concomitant]
     Dosage: UNK, UNKNOWN
     Route: 065
  17. OLIVE OIL [Concomitant]
     Dosage: UNK, UNKNOWN
     Route: 065
  18. PARACETAMOL [Concomitant]
     Dosage: UNK, UNKNOWN
     Route: 065
  19. PHOSPHATE-SANDOZ [Concomitant]
     Dosage: UNK, UNKNOWN
     Route: 065
  20. POTASSIUM CHLORIDE [Concomitant]
     Dosage: UNK, UNKNOWN
     Route: 065
  21. SODIUM CHLORIDE [Concomitant]
     Dosage: UNK, UNKNOWN
     Route: 065
  22. VISCOTEARS [Concomitant]
     Dosage: UNK, UNKNOWN
     Route: 065
  23. ZOPICLONE [Concomitant]
     Dosage: UNK, UNKNOWN
     Route: 065

REACTIONS (1)
  - Ventricular tachycardia [Unknown]
